FAERS Safety Report 13134176 (Version 1)
Quarter: 2017Q1

REPORT INFORMATION
  Report Type: Report from Study
  Country: US (occurrence: US)
  Receive Date: 20170120
  Receipt Date: 20170120
  Transmission Date: 20170428
  Serious: Yes (Other)
  Sender: FDA-Public Use
  Company Number: US-BAYER-2016-198282

PATIENT
  Age: 90 Year
  Sex: Male

DRUGS (1)
  1. NEXAVAR [Suspect]
     Active Substance: SORAFENIB
     Indication: HEPATOCELLULAR CARCINOMA
     Dosage: 200 MG, BID
     Route: 048
     Dates: start: 20161004, end: 20161203

REACTIONS (12)
  - Proctalgia [None]
  - Asthenia [Recovering/Resolving]
  - Rash [None]
  - Dyspnoea [None]
  - Flatulence [None]
  - Necrosis [None]
  - Haemorrhoids [None]
  - Constipation [None]
  - Dry skin [None]
  - Abdominal pain [None]
  - Fatigue [None]
  - Fatigue [Recovering/Resolving]

NARRATIVE: CASE EVENT DATE: 2016
